FAERS Safety Report 5122087-3 (Version None)
Quarter: 2006Q4

REPORT INFORMATION
  Report Type: 
  Country: None (occurrence: None)
  Receive Date: 20061006
  Receipt Date: 20061002
  Transmission Date: 20070319
  Serious: Yes (Other)
  Sender: FDA-Public Use
  Company Number: 2006UW19311

PATIENT
  Age: 32 Year
  Sex: Female
  Weight: 62 kg

DRUGS (1)
  1. ZOLADEX [Suspect]
     Indication: RHABDOMYOMA
     Route: 058
     Dates: start: 20060616, end: 20060921

REACTIONS (4)
  - AMENORRHOEA [None]
  - BREAST ENLARGEMENT [None]
  - BREAST TENDERNESS [None]
  - FALLOPIAN TUBE OBSTRUCTION [None]
